FAERS Safety Report 5725275-8 (Version None)
Quarter: 2008Q2

REPORT INFORMATION
  Report Type: 
  Country: None (occurrence: None)
  Receive Date: 20080429
  Receipt Date: 20080422
  Transmission Date: 20081010
  Serious: Yes (Other)
  Sender: FDA-Public Use
  Company Number: CHPA2008US03735

PATIENT
  Age: 72 Year
  Sex: Female
  Weight: 67.6 kg

DRUGS (15)
  1. TRANSDERM SCOP [Suspect]
     Indication: MOTION SICKNESS
     Dosage: 1.5 MG, Q72H, TRANSDERMAL
     Route: 062
     Dates: start: 20080210, end: 20080212
  2. LISINOPRIL [Concomitant]
  3. LOPID [Concomitant]
  4. PRILOSEC [Concomitant]
  5. COMBIVENT/GFR/ (IPRATROPIUM BROMIDE, SALBUTAMOL SULFATE) [Concomitant]
  6. CALCIUM (CALCIUM) [Concomitant]
  7. ZOCOR [Concomitant]
  8. ACTONEL [Concomitant]
  9. TAMOXIFEN CITRATE [Concomitant]
  10. NORVASC [Concomitant]
  11. LEXAPRO [Concomitant]
  12. ASPIRIN [Concomitant]
  13. FISH OIL (FISH OIL) [Concomitant]
  14. POTASSIUM GLUCONATE (POTASSIUM GLUCONATE) [Concomitant]
  15. FOSAMAX [Concomitant]

REACTIONS (5)
  - ABNORMAL BEHAVIOUR [None]
  - BALANCE DISORDER [None]
  - DIZZINESS [None]
  - HALLUCINATION [None]
  - MEMORY IMPAIRMENT [None]
